FAERS Safety Report 6126300-5 (Version None)
Quarter: 2009Q1

REPORT INFORMATION
  Report Type: 
  Country: None (occurrence: None)
  Receive Date: 20090320
  Receipt Date: 20090312
  Transmission Date: 20090719
  Serious: Yes (Death, Life-Threatening)
  Sender: FDA-Public Use
  Company Number: ES-AVENTIS-200911253EU

PATIENT
  Age: 88 Year
  Sex: Male

DRUGS (5)
  1. SEGURIL                            /00032601/ [Suspect]
     Route: 048
     Dates: start: 20090129, end: 20090204
  2. COLCHIMAX                          /00728901/ [Suspect]
     Indication: GOUTY ARTHRITIS
     Route: 048
     Dates: start: 20090202, end: 20090204
  3. ALLOPURINOL [Concomitant]
     Indication: GOUTY ARTHRITIS
     Route: 048
     Dates: start: 20090122, end: 20090204
  4. DUPHALAC [Concomitant]
     Route: 048
     Dates: start: 20090126, end: 20090204
  5. BOI K [Concomitant]
     Dosage: DOSE: 1 DF
     Route: 048
     Dates: start: 20090122, end: 20090204

REACTIONS (6)
  - CARDIO-RESPIRATORY ARREST [None]
  - DEHYDRATION [None]
  - GASTROINTESTINAL TOXICITY [None]
  - HYPOCALCAEMIA [None]
  - LEUKOPENIA [None]
  - RENAL FAILURE ACUTE [None]
